FAERS Safety Report 4640718-9 (Version None)
Quarter: 2005Q2

REPORT INFORMATION
  Report Type: 
  Country: None (occurrence: None)
  Receive Date: 20050419
  Receipt Date: 20050406
  Transmission Date: 20051028
  Serious: Yes (Other)
  Sender: FDA-Public Use
  Company Number: NLWYE563707APR05

PATIENT
  Sex: Male

DRUGS (2)
  1. EFFEXOR XR [Suspect]
     Dosage: 75 MG 1X PER 1 DAY ORAL
     Route: 048
     Dates: start: 20031101
  2. OXAXEPAM [Concomitant]

REACTIONS (2)
  - IMPULSE-CONTROL DISORDER [None]
  - SEXUAL ABUSE [None]
